FAERS Safety Report 5001638-3 (Version None)
Quarter: 2006Q2

REPORT INFORMATION
  Report Type: 
  Country: None (occurrence: None)
  Receive Date: 20060515
  Receipt Date: 20060405
  Transmission Date: 20061013
  Serious: Yes (Other)
  Sender: FDA-Public Use
  Company Number: JP-BRISTOL-MYERS SQUIBB COMPANY-13356860

PATIENT
  Age: 28 Year
  Sex: Female

DRUGS (12)
  1. ENDOXAN [Suspect]
     Indication: HODGKIN'S DISEASE
  2. VEPESID [Suspect]
     Indication: BONE MARROW TRANSPLANT
     Route: 042
  3. DOXORUBICIN HCL [Suspect]
     Indication: HODGKIN'S DISEASE
  4. BLEOMYCIN [Suspect]
     Indication: HODGKIN'S DISEASE
  5. BRIPLATIN [Suspect]
     Indication: HODGKIN'S DISEASE
     Route: 042
  6. RANIMUSTINE [Suspect]
     Indication: BONE MARROW TRANSPLANT
  7. VINBLASTINE SULFATE [Suspect]
     Indication: HODGKIN'S DISEASE
  8. DACARBAZINE [Suspect]
     Indication: HODGKIN'S DISEASE
  9. CYTARABINE [Suspect]
     Indication: HODGKIN'S DISEASE
  10. RADIOTHERAPY [Suspect]
     Indication: HODGKIN'S DISEASE
  11. DEXAMETHASONE SODIUM PHOSPHATE [Concomitant]
  12. IRINOTECAN HCL [Concomitant]

REACTIONS (2)
  - BREAST CANCER [None]
  - TREATMENT RELATED SECONDARY MALIGNANCY [None]
